FAERS Safety Report 5213348-8 (Version None)
Quarter: 2007Q1

REPORT INFORMATION
  Report Type: 
  Country: None (occurrence: None)
  Receive Date: 20070119
  Receipt Date: 20060615
  Transmission Date: 20070707
  Serious: No
  Sender: FDA-Public Use
  Company Number: US-GLAXOSMITHKLINE-A0609178A

PATIENT
  Age: 45 Year
  Sex: Male

DRUGS (12)
  1. ARIXTRA [Suspect]
     Indication: PULMONARY EMBOLISM
     Route: 058
     Dates: start: 20060613
  2. COUMADIN [Concomitant]
  3. METAMUCIL [Concomitant]
  4. MARINOL [Concomitant]
  5. ANALPRAM-HC [Concomitant]
  6. TYLENOL [Concomitant]
  7. LACTULOSE [Concomitant]
  8. MULTI-VITAMIN [Concomitant]
  9. PROTONIX [Concomitant]
  10. COLACE [Concomitant]
  11. XOPENEX [Concomitant]
  12. PERCOCET [Concomitant]

REACTIONS (2)
  - CHILLS [None]
  - PYREXIA [None]
